FAERS Safety Report 12900000 (Version 3)
Quarter: 2016Q4

REPORT INFORMATION
  Report Type: Report from Study
  Country: IT (occurrence: IT)
  Receive Date: 20161101
  Receipt Date: 20161202
  Transmission Date: 20170207
  Serious: Yes (Other)
  Sender: FDA-Public Use
  Company Number: IT-EISAI MEDICAL RESEARCH-EC-2016-021833

PATIENT
  Age: 29 Year
  Sex: Female

DRUGS (4)
  1. FYCOMPA [Suspect]
     Active Substance: PERAMPANEL
     Indication: EPILEPSY
     Route: 048
     Dates: start: 20160921, end: 20161024
  2. LAMICTAL [Concomitant]
     Active Substance: LAMOTRIGINE
  3. FYCOMPA [Suspect]
     Active Substance: PERAMPANEL
     Dosage: REDUCED DOSE
     Route: 048
     Dates: start: 2016
  4. KEPPRA [Concomitant]
     Active Substance: LEVETIRACETAM

REACTIONS (3)
  - Suicidal ideation [Unknown]
  - Ataxia [Unknown]
  - Irritability [Unknown]

NARRATIVE: CASE EVENT DATE: 20161024
